FAERS Safety Report 19259753 (Version 7)
Quarter: 2025Q2

REPORT INFORMATION
  Report Type: Report from Study
  Country: CA (occurrence: CA)
  Receive Date: 20210514
  Receipt Date: 20250501
  Transmission Date: 20250716
  Serious: Yes (Other)
  Sender: TAKEDA
  Company Number: CA-TAKEDA-2021TUS008931

PATIENT
  Age: 54 Year
  Sex: Female

DRUGS (6)
  1. VEDOLIZUMAB [Suspect]
     Active Substance: VEDOLIZUMAB
     Indication: Colitis ulcerative
  2. VEDOLIZUMAB [Suspect]
     Active Substance: VEDOLIZUMAB
  3. VEDOLIZUMAB [Suspect]
     Active Substance: VEDOLIZUMAB
  4. VEDOLIZUMAB [Suspect]
     Active Substance: VEDOLIZUMAB
  5. VEDOLIZUMAB [Suspect]
     Active Substance: VEDOLIZUMAB
  6. VEDOLIZUMAB [Suspect]
     Active Substance: VEDOLIZUMAB

REACTIONS (29)
  - Haemorrhage [Unknown]
  - Influenza like illness [Recovered/Resolved]
  - Pyrexia [Recovered/Resolved]
  - Pain [Unknown]
  - Insomnia [Unknown]
  - Increased tendency to bruise [Unknown]
  - Contusion [Unknown]
  - Catheter site discomfort [Recovered/Resolved]
  - Swollen tongue [Unknown]
  - Abdominal pain upper [Unknown]
  - Dysphagia [Unknown]
  - Stomatitis [Unknown]
  - Glossodynia [Unknown]
  - Lung disorder [Unknown]
  - Rhinorrhoea [Unknown]
  - Chest pain [Unknown]
  - Dyspnoea [Unknown]
  - Abdominal pain [Unknown]
  - Ear pain [Unknown]
  - Vomiting [Unknown]
  - Nasal congestion [Unknown]
  - Chills [Unknown]
  - Eczema [Unknown]
  - Rash [Unknown]
  - Headache [Unknown]
  - Back pain [Unknown]
  - Fatigue [Unknown]
  - Nausea [Unknown]
  - Oropharyngeal pain [Unknown]

NARRATIVE: CASE EVENT DATE: 20210210
